FAERS Safety Report 5131043-0 (Version None)
Quarter: 2006Q4

REPORT INFORMATION
  Report Type: 
  Country: None (occurrence: None)
  Receive Date: 20061019
  Receipt Date: 20061013
  Transmission Date: 20070319
  Serious: Yes (Death)
  Sender: FDA-Public Use
  Company Number: US-ROXANE LABORATORIES, INC-2006-DE-05393GD

PATIENT
  Age: 16 Year
  Sex: Male

DRUGS (2)
  1. SERTRALINE [Suspect]
  2. BUPROPION HCL [Suspect]

REACTIONS (3)
  - COMPLETED SUICIDE [None]
  - DRUG ABUSER [None]
  - INTENTIONAL OVERDOSE [None]
